FAERS Safety Report 5151380-3 (Version None)
Quarter: 2006Q4

REPORT INFORMATION
  Report Type: 
  Country: None (occurrence: None)
  Receive Date: 20061115
  Receipt Date: 20061027
  Transmission Date: 20070319
  Serious: Yes (Hospitalization)
  Sender: FDA-Public Use
  Company Number: JP-BRACCO-BRO-010896

PATIENT
  Age: 78 Year
  Sex: Male
  Weight: 60 kg

DRUGS (3)
  1. IOPAMIRON [Suspect]
     Dosage: 4.3 ML/SEC
     Route: 042
     Dates: start: 20061017, end: 20061017
  2. IOPAMIRON [Suspect]
     Indication: VERTEBROBASILAR INSUFFICIENCY
     Dosage: 4.3 ML/SEC
     Route: 042
     Dates: start: 20061017, end: 20061017
  3. KETAS [Concomitant]
     Route: 050
     Dates: start: 20061017, end: 20061018

REACTIONS (6)
  - GASTRIC ULCER [None]
  - HAEMANGIOMA OF LIVER [None]
  - MALAISE [None]
  - PLATELET COUNT DECREASED [None]
  - PNEUMONIA [None]
  - WHITE BLOOD CELL COUNT DECREASED [None]
